FAERS Safety Report 21225179 (Version 1)
Quarter: 2022Q3

REPORT INFORMATION
  Report Type: Spontaneous
  Country: US (occurrence: US)
  Receive Date: 20220817
  Receipt Date: 20220817
  Transmission Date: 20221027
  Serious: No
  Sender: FDA-Public Use
  Company Number: US-OTSUKA-2022_025073

PATIENT
  Sex: Female
  Weight: 76.2 kg

DRUGS (2)
  1. ABILIFY MAINTENA [Suspect]
     Active Substance: ARIPIPRAZOLE
     Indication: Bipolar disorder
     Dosage: 400 MG
     Route: 065
  2. ABILIFY MAINTENA [Suspect]
     Active Substance: ARIPIPRAZOLE
     Indication: Post-traumatic stress disorder

REACTIONS (3)
  - Contusion [Unknown]
  - Product storage error [Unknown]
  - Product use in unapproved indication [Unknown]
